FAERS Safety Report 19823691 (Version 1)
Quarter: 2021Q3

REPORT INFORMATION
  Report Type: Spontaneous
  Country: US (occurrence: US)
  Receive Date: 20210913
  Receipt Date: 20210913
  Transmission Date: 20211014
  Serious: No
  Sender: FDA-Public Use
  Company Number: US-SA-2021SA299707

PATIENT
  Age: 5 Year
  Sex: Male

DRUGS (1)
  1. DUPIXENT [Suspect]
     Active Substance: DUPILUMAB
     Indication: DERMATITIS ATOPIC
     Dosage: DRUG INTERVAL DOSAGE : EVERY TWO WEEKS DRUG TREATMENT DURATION: SINCE APRIL 2021
     Dates: start: 20210429

REACTIONS (2)
  - Dermatitis atopic [Unknown]
  - Product use issue [Unknown]
